FAERS Safety Report 7936551-2 (Version None)
Quarter: 2011Q4

REPORT INFORMATION
  Report Type: 
  Country: None (occurrence: None)
  Receive Date: 20111123
  Receipt Date: 20110831
  Transmission Date: 20120403
  Serious: No
  Sender: FDA-Public Use
  Company Number: US-BAYER-2011-087645

PATIENT
  Age: 84 Year
  Sex: Male
  Weight: 81 kg

DRUGS (4)
  1. CARVEDILOL [Concomitant]
  2. ALEVE (CAPLET) [Suspect]
     Indication: ARTHRITIS
     Dosage: 2 DF, QD
     Route: 048
     Dates: start: 20110301
  3. LUPON [Concomitant]
  4. SIMVASTATIN [Concomitant]

REACTIONS (1)
  - ARTHRITIS [None]
